FAERS Safety Report 8406562 (Version 5)
Quarter: 2024Q3

REPORT INFORMATION
  Report Type: Report from Study
  Country: BR (occurrence: BR)
  Receive Date: 20120215
  Receipt Date: 20240715
  Transmission Date: 20241017
  Serious: Yes (Hospitalization, Other)
  Sender: ASTELLAS
  Company Number: BR-ASTELLAS-2012US001756

PATIENT
  Age: 69 Year
  Sex: Male
  Weight: 56 kg

DRUGS (30)
  1. ERLOTINIB [Suspect]
     Active Substance: ERLOTINIB
     Indication: Hepatocellular carcinoma
     Route: 048
     Dates: start: 20100810, end: 20100917
  2. ERLOTINIB [Suspect]
     Active Substance: ERLOTINIB
     Indication: Ascites
     Route: 048
     Dates: start: 20100918, end: 20101013
  3. ERLOTINIB [Suspect]
     Active Substance: ERLOTINIB
     Indication: Hypertension
     Route: 048
     Dates: start: 20101015, end: 20110506
  4. ERLOTINIB [Suspect]
     Active Substance: ERLOTINIB
     Route: 048
     Dates: start: 20110508, end: 20110816
  5. ERLOTINIB [Suspect]
     Active Substance: ERLOTINIB
     Route: 048
     Dates: start: 20110818, end: 20110830
  6. ERLOTINIB [Suspect]
     Active Substance: ERLOTINIB
     Route: 048
     Dates: start: 20110901, end: 20110915
  7. ERLOTINIB [Suspect]
     Active Substance: ERLOTINIB
     Route: 048
     Dates: start: 20110917, end: 20111001
  8. ERLOTINIB [Suspect]
     Active Substance: ERLOTINIB
     Route: 048
     Dates: start: 20111003, end: 20111020
  9. ERLOTINIB [Suspect]
     Active Substance: ERLOTINIB
     Route: 048
     Dates: start: 20111022, end: 20120123
  10. SORAFENIB [Suspect]
     Active Substance: SORAFENIB
     Indication: Hepatocellular carcinoma
     Route: 048
     Dates: start: 20100810, end: 20100916
  11. SORAFENIB [Suspect]
     Active Substance: SORAFENIB
     Indication: Ascites
     Route: 048
     Dates: start: 20100918, end: 20101013
  12. SORAFENIB [Suspect]
     Active Substance: SORAFENIB
     Indication: Hypertension
     Route: 048
     Dates: start: 20101015, end: 20110118
  13. SORAFENIB [Suspect]
     Active Substance: SORAFENIB
     Route: 048
     Dates: start: 20110119, end: 20110119
  14. SORAFENIB [Suspect]
     Active Substance: SORAFENIB
     Route: 048
     Dates: start: 20110120, end: 20110506
  15. SORAFENIB [Suspect]
     Active Substance: SORAFENIB
     Route: 048
     Dates: start: 20110508, end: 20110511
  16. SORAFENIB [Suspect]
     Active Substance: SORAFENIB
     Route: 048
     Dates: start: 20110512, end: 20110726
  17. SORAFENIB [Suspect]
     Active Substance: SORAFENIB
     Route: 048
     Dates: start: 20110728, end: 20110806
  18. SORAFENIB [Suspect]
     Active Substance: SORAFENIB
     Route: 048
     Dates: start: 20110808, end: 20110816
  19. SORAFENIB [Suspect]
     Active Substance: SORAFENIB
     Route: 048
     Dates: start: 20110818, end: 20110830
  20. SORAFENIB [Suspect]
     Active Substance: SORAFENIB
     Route: 048
     Dates: start: 20110901, end: 20110915
  21. SORAFENIB [Suspect]
     Active Substance: SORAFENIB
     Route: 048
     Dates: start: 20110917, end: 20111001
  22. SORAFENIB [Suspect]
     Active Substance: SORAFENIB
     Route: 048
     Dates: start: 20111003, end: 20111003
  23. SORAFENIB [Suspect]
     Active Substance: SORAFENIB
     Route: 048
     Dates: start: 20111004, end: 20111020
  24. SORAFENIB [Suspect]
     Active Substance: SORAFENIB
     Route: 048
     Dates: start: 20111022, end: 20111230
  25. SORAFENIB [Suspect]
     Active Substance: SORAFENIB
     Route: 048
     Dates: start: 20120101, end: 20120123
  26. PROPRANOLOL HYDROCHLORIDE [Concomitant]
     Active Substance: PROPRANOLOL HYDROCHLORIDE
     Indication: Product used for unknown indication
     Dosage: UNK UNK, UNKNOWN FREQ.
     Route: 065
     Dates: start: 20101019
  27. Renitec [Concomitant]
     Indication: Hypertension
     Dosage: UNK UNK, UNKNOWN FREQ.
     Route: 065
     Dates: start: 20100824
  28. ENSURE OSMOLITE [Concomitant]
     Indication: Product used for unknown indication
     Dosage: UNK UNK, UNKNOWN FREQ.
     Route: 065
  29. LOPERAMIDE [Concomitant]
     Active Substance: LOPERAMIDE
     Indication: Product used for unknown indication
     Dosage: UNK UNK, UNKNOWN FREQ.
     Route: 065
     Dates: start: 20110403
  30. FUROSEMIDE [Concomitant]
     Active Substance: FUROSEMIDE
     Indication: Ascites
     Dosage: UNK UNK, UNKNOWN FREQ.
     Route: 065
     Dates: start: 20100804, end: 20120117

REACTIONS (7)
  - Anaemia [Recovered/Resolved]
  - Gastroduodenal ulcer [Unknown]
  - Gastritis erosive [Unknown]
  - Toxicity to various agents [Unknown]
  - Varices oesophageal [Unknown]
  - Erosive duodenitis [Unknown]
  - Off label use [Unknown]

NARRATIVE: CASE EVENT DATE: 20111011
